FAERS Safety Report 9325038 (Version 2)
Quarter: 2013Q2

REPORT INFORMATION
  Report Type: Spontaneous
  Country: AE (occurrence: None)
  Receive Date: 20130530
  Receipt Date: 20130610
  Transmission Date: 20140414
  Serious: Yes (Hospitalization)
  Sender: FDA-Public Use
  Company Number: THQ2013A04001

PATIENT
  Age: 62 Year
  Sex: Male

DRUGS (5)
  1. ACTOS [Suspect]
     Indication: DIABETES MELLITUS
     Route: 048
     Dates: start: 201106, end: 201301
  2. COZAAR(LOSARTAN POTASISUM) [Concomitant]
  3. ASPIRIN(ACETYLSALICYLIC ACID) [Concomitant]
  4. AMARYL(GLIMEPIRIDE) [Concomitant]
  5. JANUMET [Concomitant]

REACTIONS (1)
  - Normochromic normocytic anaemia [None]
